FAERS Safety Report 5888796-3 (Version None)
Quarter: 2008Q3

REPORT INFORMATION
  Report Type: 
  Country: None (occurrence: None)
  Receive Date: 20080919
  Receipt Date: 20080911
  Transmission Date: 20090109
  Serious: No
  Sender: FDA-Public Use
  Company Number: US-JNJFOC-20080902939

PATIENT
  Sex: Female
  Weight: 48.54 kg

DRUGS (3)
  1. INVEGA [Suspect]
     Indication: BIPOLAR DISORDER
     Route: 048
  2. RISPERDAL [Suspect]
     Indication: BIPOLAR DISORDER
     Dosage: TAKEN AT NIGHT
     Route: 048
  3. LAMICTAL [Concomitant]
     Route: 048

REACTIONS (1)
  - WEIGHT INCREASED [None]
